FAERS Safety Report 7200330-4 (Version None)
Quarter: 2010Q4

REPORT INFORMATION
  Report Type: 
  Country: None (occurrence: None)
  Receive Date: 20101228
  Receipt Date: 20101222
  Transmission Date: 20110411
  Serious: Yes (Hospitalization)
  Sender: FDA-Public Use
  Company Number: US-BRISTOL-MYERS SQUIBB COMPANY-15457971

PATIENT
  Age: 62 Year
  Sex: Male
  Weight: 114 kg

DRUGS (2)
  1. CARBOPLATIN [Suspect]
     Indication: NON-SMALL CELL LUNG CANCER
     Dosage: LAST DOSE ON 06DEC10
     Dates: start: 20100927
  2. TAXOL [Suspect]
     Indication: NON-SMALL CELL LUNG CANCER
     Dosage: LAST DOSE ON 06DEC10
     Dates: start: 20100927

REACTIONS (3)
  - COUGH [None]
  - HYPOKALAEMIA [None]
  - HYPOMAGNESAEMIA [None]
